FAERS Safety Report 4896366-9 (Version None)
Quarter: 2006Q1

REPORT INFORMATION
  Report Type: 
  Country: None (occurrence: None)
  Receive Date: 20060126
  Receipt Date: 20060112
  Transmission Date: 20060701
  Serious: Yes (Other)
  Sender: FDA-Public Use
  Company Number: 2006RR-01490

PATIENT
  Age: 66 Year
  Sex: Female

DRUGS (6)
  1. AMOXICILLIN [Suspect]
     Indication: DUODENAL ULCER
     Dosage: ORAL
     Route: 048
     Dates: start: 20051208, end: 20051208
  2. HELICLEAR (LANSOPRAZOLE) [Suspect]
     Indication: DUODENAL ULCER
     Dosage: ORAL
     Route: 048
     Dates: start: 20051208, end: 20051208
  3. HELICLEAR (CLARITHROMYCIN) [Suspect]
     Indication: DUODENAL ULCER
     Dosage: ORAL
     Route: 048
     Dates: start: 20051208, end: 20051208
  4. BENDROFLUAZIDE (BENDROFLUMETHIAZIDE) [Concomitant]
  5. OLMESARTAN MEDOXOMIL [Concomitant]
  6. ASPIRIN [Concomitant]

REACTIONS (5)
  - ANAPHYLACTIC REACTION [None]
  - DIZZINESS [None]
  - DYSPHAGIA [None]
  - RASH [None]
  - SWOLLEN TONGUE [None]
